FAERS Safety Report 6241224-0 (Version None)
Quarter: 2009Q2

REPORT INFORMATION
  Report Type: 
  Country: None (occurrence: None)
  Receive Date: 20090619
  Receipt Date: 20090619
  Transmission Date: 20091009
  Serious: No
  Sender: FDA-Public Use
  Company Number: None

PATIENT
  Sex: Male
  Weight: 110.2241 kg

DRUGS (3)
  1. REMICADE [Suspect]
     Indication: CROHN'S DISEASE
     Dosage: REMICADE -ONCE- IV DRIP
     Route: 041
     Dates: start: 20090304, end: 20090304
  2. MERCAPTOPURINE [Concomitant]
  3. CIPRO [Concomitant]

REACTIONS (6)
  - ARTHRALGIA [None]
  - FATIGUE [None]
  - HEMIPARESIS [None]
  - HYPERSENSITIVITY [None]
  - MYALGIA [None]
  - PARAESTHESIA [None]
